FAERS Safety Report 19724378 (Version 2)
Quarter: 2021Q3

REPORT INFORMATION
  Report Type: Report from Study
  Country: JP (occurrence: JP)
  Receive Date: 20210819
  Receipt Date: 20210915
  Transmission Date: 20211014
  Serious: Yes (Hospitalization)
  Sender: FDA-Public Use
  Company Number: JP-JNJFOC-20210826087

PATIENT
  Age: 54 Year
  Sex: Female
  Weight: 75 kg

DRUGS (33)
  1. TACROLIMUS. [Concomitant]
     Active Substance: TACROLIMUS
     Indication: POLYMYOSITIS
     Route: 048
     Dates: start: 20210811, end: 20210812
  2. TACROLIMUS. [Concomitant]
     Active Substance: TACROLIMUS
     Route: 048
     Dates: start: 20210814, end: 20210823
  3. PREDONINE [Concomitant]
     Active Substance: PREDNISOLONE
     Route: 048
     Dates: start: 20210826, end: 20210901
  4. PREDONINE [Concomitant]
     Active Substance: PREDNISOLONE
     Route: 048
     Dates: start: 20210902
  5. SOLU?MEDROL [Concomitant]
     Active Substance: METHYLPREDNISOLONE SODIUM SUCCINATE
     Indication: POLYMYOSITIS
  6. LANTUS XR [Concomitant]
     Active Substance: INSULIN GLARGINE
     Dosage: 10 UNITS DAILY
     Route: 058
     Dates: start: 20210825, end: 20210826
  7. PREDONINE [Concomitant]
     Active Substance: PREDNISOLONE
     Route: 048
     Dates: start: 20210813, end: 20210816
  8. REPAGLINIDE. [Concomitant]
     Active Substance: REPAGLINIDE
     Indication: DIABETES MELLITUS
     Route: 048
     Dates: start: 20200722
  9. RUPATADINE FUMARATE [Concomitant]
     Active Substance: RUPATADINE FUMARATE
     Indication: RASH
     Dosage: AS NECESARY
     Route: 048
     Dates: start: 20210203
  10. LANTUS XR [Concomitant]
     Active Substance: INSULIN GLARGINE
     Dosage: 14 UNITS DAILY
     Route: 058
     Dates: start: 20210903
  11. ALENDRONATE SODIUM HYDRATE [Concomitant]
     Active Substance: ALENDRONATE SODIUM
     Indication: OSTEOPOROSIS PROPHYLAXIS
     Route: 048
     Dates: start: 20180706
  12. NOVORAPID [Concomitant]
     Active Substance: INSULIN ASPART
     Indication: DIABETES MELLITUS
     Dosage: 12 UNITS
     Route: 058
     Dates: start: 20210816, end: 20210819
  13. TACROLIMUS. [Concomitant]
     Active Substance: TACROLIMUS
     Route: 048
     Dates: start: 20210824
  14. PREDONINE [Concomitant]
     Active Substance: PREDNISOLONE
     Indication: DERMATOMYOSITIS
     Route: 048
     Dates: start: 20201222
  15. PREDONINE [Concomitant]
     Active Substance: PREDNISOLONE
     Indication: POLYMYOSITIS
     Route: 048
     Dates: start: 20210126
  16. PREDONINE [Concomitant]
     Active Substance: PREDNISOLONE
     Route: 048
     Dates: start: 20210817, end: 20210819
  17. PREDONINE [Concomitant]
     Active Substance: PREDNISOLONE
     Route: 048
     Dates: start: 20210823, end: 20210825
  18. TOPRIM [Concomitant]
     Indication: ANTIFUNGAL PROPHYLAXIS
     Route: 048
     Dates: start: 20180615
  19. BETAMETHASONE BUTYRATE PROPIONATE [Concomitant]
     Active Substance: BETAMETHASONE BUTYRATE PROPIONATE
     Indication: RASH
     Dosage: AS NECESSARY
     Route: 061
     Dates: start: 20200521
  20. LANTUS XR [Concomitant]
     Active Substance: INSULIN GLARGINE
     Indication: DIABETES MELLITUS
     Dosage: 4 UNITS DAILY
     Route: 058
     Dates: start: 20210816, end: 20210819
  21. NOVORAPID [Concomitant]
     Active Substance: INSULIN ASPART
     Dosage: 28 UNITS
     Route: 058
     Dates: start: 20210825
  22. PREDONINE [Concomitant]
     Active Substance: PREDNISOLONE
     Route: 048
     Dates: start: 20201222, end: 20210810
  23. LANTUS XR [Concomitant]
     Active Substance: INSULIN GLARGINE
     Dosage: 8 UNITS DAILY
     Route: 058
     Dates: start: 20210820, end: 20210824
  24. USTEKINUMAB [Suspect]
     Active Substance: USTEKINUMAB
     Indication: DERMATOMYOSITIS
     Route: 042
     Dates: start: 20210622
  25. PREDONINE [Concomitant]
     Active Substance: PREDNISOLONE
     Route: 048
     Dates: start: 20210820, end: 20210822
  26. ELDECALCITOL [Concomitant]
     Active Substance: ELDECALCITOL
     Indication: OSTEOPOROSIS PROPHYLAXIS
     Route: 048
     Dates: start: 20180618
  27. SOLU?MEDROL [Concomitant]
     Active Substance: METHYLPREDNISOLONE SODIUM SUCCINATE
     Indication: DERMATOMYOSITIS
     Route: 042
     Dates: start: 20210810, end: 20210812
  28. NOVORAPID [Concomitant]
     Active Substance: INSULIN ASPART
     Dosage: 12 UNITS
     Route: 058
     Dates: start: 20210820, end: 20210824
  29. TACROLIMUS. [Concomitant]
     Active Substance: TACROLIMUS
     Route: 048
     Dates: start: 20210813, end: 20210813
  30. LANSOPRAZOLE. [Concomitant]
     Active Substance: LANSOPRAZOLE
     Indication: GASTRITIS PROPHYLAXIS
     Route: 048
     Dates: start: 20180529
  31. LANTUS XR [Concomitant]
     Active Substance: INSULIN GLARGINE
     Dosage: 12 UNITS DAILY
     Route: 058
     Dates: start: 20210827, end: 20210902
  32. TACROLIMUS. [Concomitant]
     Active Substance: TACROLIMUS
     Indication: DERMATOMYOSITIS
     Route: 048
     Dates: start: 20181011, end: 20210810
  33. AMLODIPINE BESILATE [Concomitant]
     Active Substance: AMLODIPINE BESYLATE
     Indication: HYPERTENSION
     Route: 048
     Dates: start: 20180529

REACTIONS (1)
  - Respiratory failure [Recovered/Resolved]

NARRATIVE: CASE EVENT DATE: 20210810
